FAERS Safety Report 8797835 (Version 3)
Quarter: 2013Q2

REPORT INFORMATION
  Report Type: Report from Study
  Country: US (occurrence: US)
  Receive Date: 20120920
  Receipt Date: 20130528
  Transmission Date: 20140414
  Serious: Yes (Hospitalization, Other)
  Sender: FDA-Public Use
  Company Number: US-PURDUE-USA-2012-0093134

PATIENT
  Age: 49 Year
  Sex: Male
  Weight: 243 kg

DRUGS (3)
  1. OXYCONTIN (NDA 22-272) [Suspect]
     Indication: CANCER PAIN
     Dosage: 40 MG, BID
     Route: 048
     Dates: start: 20111209, end: 20120905
  2. OXYCONTIN (NDA 22-272) [Suspect]
     Indication: PAIN
     Dosage: UNKNOWN
     Route: 048
     Dates: start: 201209
  3. OXYCONTIN (NDA 22-272) [Suspect]
     Indication: RENAL CELL CARCINOMA
     Dosage: 80 MG, TID
     Route: 048

REACTIONS (5)
  - Fall [Unknown]
  - Hip fracture [Unknown]
  - Malignant neoplasm progression [Not Recovered/Not Resolved]
  - Spinal cord compression [Recovered/Resolved]
  - Pain [Not Recovered/Not Resolved]
